FAERS Safety Report 7164815-1 (Version None)
Quarter: 2010Q4

REPORT INFORMATION
  Report Type: 
  Country: None (occurrence: None)
  Receive Date: 20101215
  Receipt Date: 20101207
  Transmission Date: 20110411
  Serious: Yes (Other)
  Sender: FDA-Public Use
  Company Number: IE-PFIZER INC-2010130527

PATIENT
  Age: 52 Year
  Sex: Male

DRUGS (6)
  1. NEURONTIN [Suspect]
     Dosage: 300 MG, UNK
     Route: 048
     Dates: start: 20101110, end: 20101112
  2. NEURONTIN [Suspect]
     Dosage: 300 MG, 2X/DAY
     Route: 048
     Dates: start: 20101113, end: 20101115
  3. NEURONTIN [Suspect]
     Dosage: 300 MG, 3X/DAY
     Route: 048
     Dates: start: 20101116
  4. PONSTAN [Concomitant]
  5. LIPITOR [Concomitant]
  6. MAXOLON [Concomitant]

REACTIONS (4)
  - ACCIDENT [None]
  - DIZZINESS [None]
  - EYE SWELLING [None]
  - VISION BLURRED [None]
